FAERS Safety Report 6399078-8 (Version None)
Quarter: 2009Q4

REPORT INFORMATION
  Report Type: 
  Country: None (occurrence: None)
  Receive Date: 20091008
  Receipt Date: 20091001
  Transmission Date: 20100525
  Serious: Yes (Other)
  Sender: FDA-Public Use
  Company Number: PERC20090127

PATIENT
  Age: 37 Year
  Sex: Male

DRUGS (3)
  1. PERCOCET [Suspect]
     Indication: DRUG USE FOR UNKNOWN INDICATION
     Dosage: INTRANASAL
     Route: 045
  2. VICODIN [Suspect]
     Indication: DRUG USE FOR UNKNOWN INDICATION
     Dosage: INTRNASAL
     Route: 045
  3. TYLOX (PARACETAMOL, OXYCODONE HYDROCHLORIDE, OXYCODONE TEREPHTHALATE) [Suspect]
     Indication: DRUG USE FOR UNKNOWN INDICATION
     Dosage: INTRANASAL
     Route: 045

REACTIONS (9)
  - AMPHETAMINES POSITIVE [None]
  - CULTURE POSITIVE [None]
  - DRUG ABUSE [None]
  - ENTEROCOCCAL INFECTION [None]
  - INCORRECT DOSE ADMINISTERED [None]
  - INCORRECT ROUTE OF DRUG ADMINISTRATION [None]
  - KLEBSIELLA INFECTION [None]
  - NASAL NECROSIS [None]
  - WRONG TECHNIQUE IN DRUG USAGE PROCESS [None]
